FAERS Safety Report 15977549 (Version 2)
Quarter: 2019Q2

REPORT INFORMATION
  Report Type: Spontaneous
  Country: JP (occurrence: JP)
  Receive Date: 20190218
  Receipt Date: 20190408
  Transmission Date: 20190711
  Serious: Yes (Death, Other)
  Sender: FDA-Public Use
  Company Number: JP-009507513-1806JPN002760J

PATIENT
  Age: 75 Year
  Sex: Male
  Weight: 45 kg

DRUGS (8)
  1. FAMOTIDINE. [Concomitant]
     Active Substance: FAMOTIDINE
     Indication: PROPHYLAXIS AGAINST GASTROINTESTINAL ULCER
     Dosage: 20 MILLIGRAM, BID
     Route: 048
     Dates: start: 20180404, end: 20180621
  2. HERBAL NOS [Concomitant]
     Active Substance: HERBALS
     Indication: DECREASED APPETITE
     Dosage: 2.5 GRAM, TID
     Route: 048
     Dates: start: 20180328
  3. LOXOPROFEN [Concomitant]
     Active Substance: LOXOPROFEN
     Indication: CHEST PAIN
     Dosage: 60 MILLIGRAM, TID
     Route: 048
     Dates: start: 20180501, end: 20180530
  4. AMBROXOL HYDROCHLORIDE [Concomitant]
     Active Substance: AMBROXOL HYDROCHLORIDE
     Indication: AIRWAY SECRETION CLEARANCE THERAPY
     Dosage: 15 MILLIGRAM, TID
     Route: 048
     Dates: start: 20180328
  5. CELECOX [Concomitant]
     Active Substance: CELECOXIB
     Indication: CHEST PAIN
     Dosage: 100 MILLIGRAM, BID
     Route: 048
     Dates: start: 20180412, end: 20180501
  6. KEYTRUDA [Suspect]
     Active Substance: PEMBROLIZUMAB
     Indication: NON-SMALL CELL LUNG CANCER
     Dosage: 200 MG, Q3W
     Route: 041
     Dates: start: 20180423, end: 20180604
  7. REBAMIPIDE [Concomitant]
     Active Substance: REBAMIPIDE
     Indication: CHEST PAIN
     Dosage: 100 MILLIGRAM, BID
     Route: 048
     Dates: start: 20180412
  8. BROTIZOLAM [Concomitant]
     Active Substance: BROTIZOLAM
     Indication: INSOMNIA
     Dosage: 0.25 MILLIGRAM, QD
     Route: 048
     Dates: start: 20180420

REACTIONS (3)
  - Interstitial lung disease [Recovering/Resolving]
  - Rash [Recovered/Resolved]
  - Malignant neoplasm progression [Fatal]

NARRATIVE: CASE EVENT DATE: 20180516
